FAERS Safety Report 7113153-1 (Version None)
Quarter: 2010Q4

REPORT INFORMATION
  Report Type: 
  Country: None (occurrence: None)
  Receive Date: 20101119
  Receipt Date: 20101116
  Transmission Date: 20110411
  Serious: Yes (Hospitalization)
  Sender: FDA-Public Use
  Company Number: CH-SANOFI-AVENTIS-2010SA069887

PATIENT
  Sex: Male

DRUGS (3)
  1. TAXOTERE [Suspect]
     Route: 041
     Dates: start: 20101007, end: 20101007
  2. CARBOPLATIN [Suspect]
     Route: 042
     Dates: start: 20101007, end: 20101007
  3. ZOMETA [Suspect]
     Route: 042
     Dates: start: 20101007, end: 20101007

REACTIONS (2)
  - HYPOCALCAEMIA [None]
  - RENAL FAILURE ACUTE [None]
